FAERS Safety Report 23779692 (Version 1)
Quarter: 2024Q2

REPORT INFORMATION
  Report Type: Spontaneous
  Country: US (occurrence: US)
  Receive Date: 20240424
  Receipt Date: 20240424
  Transmission Date: 20240716
  Serious: Yes (Hospitalization, Other)
  Sender: FDA-Public Use
  Company Number: US-PFIZER INC-PV202400052599

PATIENT
  Age: 7 Week
  Sex: Female
  Weight: 1 kg

DRUGS (1)
  1. AZITHROMYCIN [Suspect]
     Active Substance: AZITHROMYCIN
     Indication: Pertussis
     Dosage: 10 MG/KG

REACTIONS (3)
  - Obstruction gastric [Unknown]
  - Gastrooesophageal reflux disease [Unknown]
  - Off label use [Unknown]
